FAERS Safety Report 6898917-1 (Version None)
Quarter: 2010Q3

REPORT INFORMATION
  Report Type: 
  Country: None (occurrence: None)
  Receive Date: 20100802
  Receipt Date: 20071217
  Transmission Date: 20110219
  Serious: Yes (Other)
  Sender: FDA-Public Use
  Company Number: US-PFIZER INC-2007040133

PATIENT
  Sex: Male
  Weight: 64.5 kg

DRUGS (14)
  1. LYRICA [Suspect]
     Indication: HERPES ZOSTER
     Dates: start: 20070513
  2. LYRICA [Suspect]
     Indication: PAIN
  3. LYRICA [Suspect]
  4. FOLTX [Concomitant]
  5. LOPRESSOR [Concomitant]
  6. ACETYLSALICYLIC ACID SRT [Concomitant]
  7. WARFARIN SODIUM [Concomitant]
  8. ASCORBIC ACID [Concomitant]
  9. TIMOLOL MALEATE [Concomitant]
  10. LUMIGAN [Concomitant]
  11. COZAAR [Concomitant]
  12. ZOCOR [Concomitant]
  13. VALTREX [Concomitant]
  14. COUMADIN [Concomitant]

REACTIONS (6)
  - DIZZINESS [None]
  - DRUG EFFECT DECREASED [None]
  - FEELING ABNORMAL [None]
  - FEELING DRUNK [None]
  - GAIT DISTURBANCE [None]
  - PAIN [None]
